FAERS Safety Report 4304225-5 (Version None)
Quarter: 2004Q1

REPORT INFORMATION
  Report Type: 
  Country: None (occurrence: None)
  Receive Date: 20040225
  Receipt Date: 20031009
  Transmission Date: 20041129
  Serious: Yes (Life-Threatening, Hospitalization, Disabling, Other)
  Sender: FDA-Public Use
  Company Number: WAES 0310AUS00031

PATIENT
  Age: 77 Year
  Sex: Male

DRUGS (2)
  1. ERYTHROMYCIN [Suspect]
     Indication: BRONCHITIS
     Dates: start: 20030920, end: 20030930
  2. ZOCOR [Suspect]
     Indication: HYPERCHOLESTEROLAEMIA
     Route: 048
     Dates: start: 19970101, end: 20030930

REACTIONS (13)
  - ASTHENIA [None]
  - ATRIAL FIBRILLATION [None]
  - BRONCHITIS [None]
  - DIFFICULTY IN WALKING [None]
  - DRUG INTERACTION [None]
  - HYPOTENSION [None]
  - MYALGIA [None]
  - MYOCARDIAL INFARCTION [None]
  - MYOGLOBINURIA [None]
  - MYOPATHY [None]
  - RENAL FAILURE [None]
  - RESPIRATORY FAILURE [None]
  - RHABDOMYOLYSIS [None]
